FAERS Safety Report 8229733-6 (Version None)
Quarter: 2012Q1

REPORT INFORMATION
  Report Type: 
  Country: None (occurrence: None)
  Receive Date: 20120322
  Receipt Date: 20120312
  Transmission Date: 20120608
  Serious: Yes (Hospitalization)
  Sender: FDA-Public Use
  Company Number: US-MERCK-1202USA02578

PATIENT
  Age: 45 Year
  Sex: Female

DRUGS (3)
  1. METHADONE HYDROCHLORIDE [Concomitant]
     Route: 065
  2. EPZICOM [Concomitant]
     Route: 065
     Dates: start: 20100101
  3. ISENTRESS [Suspect]
     Indication: HIV INFECTION
     Route: 048
     Dates: start: 20100101

REACTIONS (2)
  - BLOOD TRIGLYCERIDES INCREASED [None]
  - RENAL IMPAIRMENT [None]
